FAERS Safety Report 10456442 (Version 1)
Quarter: 2014Q3

REPORT INFORMATION
  Report Type: Spontaneous
  Country: US (occurrence: None)
  Receive Date: 20140822
  Receipt Date: 20140822
  Transmission Date: 20150326
  Serious: Yes (Life-Threatening, Hospitalization, Disabling, Other)
  Sender: FDA-Public Use
  Company Number: 2014SUN00097

PATIENT
  Age: 39 Year
  Sex: Male
  Weight: 135 kg

DRUGS (1)
  1. BACTRIM DS [Suspect]
     Active Substance: SULFAMETHOXAZOLE\TRIMETHOPRIM
     Indication: CYST
     Dates: start: 20131105, end: 20131106

REACTIONS (7)
  - Diarrhoea [None]
  - Rash [None]
  - Arthralgia [None]
  - Hepatic enzyme abnormal [None]
  - Blood bilirubin increased [None]
  - Pyrexia [None]
  - Pruritus [None]

NARRATIVE: CASE EVENT DATE: 20131106
